FAERS Safety Report 5046911-8 (Version None)
Quarter: 2006Q3

REPORT INFORMATION
  Report Type: 
  Country: None (occurrence: None)
  Receive Date: 20060710
  Receipt Date: 20060515
  Transmission Date: 20061208
  Serious: Yes (Other)
  Sender: FDA-Public Use
  Company Number: ES-MERCK-0605ESP00027

PATIENT
  Age: 12 Year
  Sex: Female

DRUGS (2)
  1. SINGULAIR [Suspect]
     Indication: ASTHMA
     Route: 048
     Dates: start: 20060601, end: 20060601
  2. SINGULAIR [Suspect]
     Route: 048
     Dates: start: 20040101, end: 20060501

REACTIONS (2)
  - EYELID OEDEMA [None]
  - FACE OEDEMA [None]
